FAERS Safety Report 15477442 (Version 1)
Quarter: 2018Q4

REPORT INFORMATION
  Report Type: Report from Study
  Country: US (occurrence: US)
  Receive Date: 20181009
  Receipt Date: 20181009
  Transmission Date: 20190205
  Serious: No
  Sender: FDA-Public Use
  Company Number: US-IPSEN BIOPHARMACEUTICALS, INC.-2017-11934

PATIENT
  Age: 11 Year
  Sex: Male

DRUGS (3)
  1. NUTROPIN AQ [Suspect]
     Active Substance: SOMATROPIN
     Indication: BODY HEIGHT BELOW NORMAL
     Route: 058
  2. NUTROPIN AQ [Suspect]
     Active Substance: SOMATROPIN
     Indication: MOSAICISM
     Route: 058
     Dates: start: 20170502
  3. NUTROPIN AQ [Suspect]
     Active Substance: SOMATROPIN
     Indication: OFF LABEL USE
     Route: 058

REACTIONS (9)
  - Blood pressure increased [Not Recovered/Not Resolved]
  - Aspartate aminotransferase increased [Unknown]
  - Blood triglycerides increased [Unknown]
  - Body mass index decreased [Unknown]
  - Low density lipoprotein increased [Unknown]
  - Strabismus [Not Recovered/Not Resolved]
  - Off label use [Unknown]
  - Blood thyroid stimulating hormone increased [Unknown]
  - Exercise tolerance decreased [Unknown]

NARRATIVE: CASE EVENT DATE: 2017
